FAERS Safety Report 23101921 (Version 4)
Quarter: 2024Q1

REPORT INFORMATION
  Report Type: Spontaneous
  Country: DE (occurrence: DE)
  Receive Date: 20231025
  Receipt Date: 20240118
  Transmission Date: 20240409
  Serious: Yes (Other)
  Sender: FDA-Public Use
  Company Number: DE-002147023-NVSC2023DE227487

PATIENT
  Age: 25 Year
  Sex: Female

DRUGS (1)
  1. CANAKINUMAB [Suspect]
     Active Substance: CANAKINUMAB
     Indication: Cryopyrin associated periodic syndrome
     Dosage: 150 MG, (EVERY 6 WEEKS)
     Route: 065

REACTIONS (8)
  - Multiple sclerosis [Recovering/Resolving]
  - White matter lesion [Recovering/Resolving]
  - Plasmacytoma [Recovering/Resolving]
  - Hepatitis alcoholic [Recovering/Resolving]
  - Skin lesion [Recovering/Resolving]
  - Visual impairment [Recovering/Resolving]
  - Dizziness [Recovering/Resolving]
  - Off label use [Recovered/Resolved]
